FAERS Safety Report 10598470 (Version 2)
Quarter: 2014Q4

REPORT INFORMATION
  Report Type: Spontaneous
  Country: US (occurrence: US)
  Receive Date: 20141121
  Receipt Date: 20141126
  Transmission Date: 20150529
  Serious: Yes (Death)
  Sender: FDA-Public Use
  Company Number: US-009507513-1411USA008519

PATIENT
  Age: 74 Year
  Sex: Female

DRUGS (1)
  1. EMEND [Suspect]
     Active Substance: APREPITANT
     Dosage: UNK
     Route: 048
     Dates: end: 201407

REACTIONS (3)
  - Death [Fatal]
  - Adverse event [Unknown]
  - Hospice care [Unknown]

NARRATIVE: CASE EVENT DATE: 20140920
